FAERS Safety Report 15884782 (Version 18)
Quarter: 2022Q1

REPORT INFORMATION
  Report Type: Other
  Country: CA (occurrence: None)
  Receive Date: 20190129
  Receipt Date: 20220329
  Transmission Date: 20220424
  Serious: Yes (Hospitalization, Other)
  Sender: FDA-Public Use
  Company Number: CA-ROCHE-2255071

PATIENT
  Age: 50 Year
  Sex: Male

DRUGS (3)
  1. OCREVUS [Suspect]
     Active Substance: OCRELIZUMAB
     Indication: Relapsing-remitting multiple sclerosis
     Dosage: THEN 600 MG EVERY 6 MONTHS
     Route: 042
     Dates: start: 20190114
  2. COVID-19 VACCINE NOS [Suspect]
     Active Substance: COVID-19 VACCINE NOS
     Indication: Product used for unknown indication
     Route: 065
     Dates: start: 20210427
  3. PREDNISONE [Concomitant]
     Active Substance: PREDNISONE

REACTIONS (22)
  - Paraesthesia [Unknown]
  - Headache [Not Recovered/Not Resolved]
  - Cerebral haemorrhage [Unknown]
  - Fall [Unknown]
  - Helicobacter test positive [Not Recovered/Not Resolved]
  - Influenza [Recovered/Resolved]
  - Pyrexia [Unknown]
  - Pain [Unknown]
  - Nausea [Unknown]
  - Vomiting [Unknown]
  - Illness [Unknown]
  - Gait disturbance [Not Recovered/Not Resolved]
  - Nausea [Recovering/Resolving]
  - Tremor [Unknown]
  - Abdominal discomfort [Unknown]
  - Headache [Unknown]
  - Malaise [Unknown]
  - Tremor [Unknown]
  - Abdominal discomfort [Unknown]
  - Weight decreased [Not Recovered/Not Resolved]
  - White blood cell count increased [Unknown]
  - Neutrophil count increased [Unknown]

NARRATIVE: CASE EVENT DATE: 20201113
